FAERS Safety Report 6392213-7 (Version None)
Quarter: 2009Q4

REPORT INFORMATION
  Report Type: 
  Country: None (occurrence: None)
  Receive Date: 20091005
  Receipt Date: 20090928
  Transmission Date: 20100525
  Serious: Yes (Other)
  Sender: FDA-Public Use
  Company Number: 2009AL006316

PATIENT
  Age: 37 Year
  Sex: Male

DRUGS (2)
  1. MIRTAZAPINE [Suspect]
     Indication: DEPRESSION
     Dosage: 30 MG; QD
     Dates: start: 20070601, end: 20090420
  2. NEXIUM [Concomitant]

REACTIONS (26)
  - ABDOMINAL PAIN UPPER [None]
  - AGGRESSION [None]
  - DARK CIRCLES UNDER EYES [None]
  - DISTURBANCE IN ATTENTION [None]
  - FATIGUE [None]
  - FEELING ABNORMAL [None]
  - HYPERACUSIS [None]
  - HYPERSOMNIA [None]
  - INFLUENZA LIKE ILLNESS [None]
  - INITIAL INSOMNIA [None]
  - LIBIDO DECREASED [None]
  - LIBIDO INCREASED [None]
  - MALAISE [None]
  - MEMORY IMPAIRMENT [None]
  - MIDDLE INSOMNIA [None]
  - NAUSEA [None]
  - ORGANIC ERECTILE DYSFUNCTION [None]
  - PAIN [None]
  - PALLOR [None]
  - PENILE SIZE REDUCED [None]
  - PYREXIA [None]
  - SKIN ODOUR ABNORMAL [None]
  - SPEECH DISORDER [None]
  - STRESS [None]
  - SUICIDAL IDEATION [None]
  - SYNCOPE [None]
